FAERS Safety Report 13076901 (Version 6)
Quarter: 2018Q1

REPORT INFORMATION
  Report Type: Spontaneous
  Country: US (occurrence: US)
  Receive Date: 20161230
  Receipt Date: 20180212
  Transmission Date: 20180508
  Serious: Yes (Other)
  Sender: FDA-Public Use
  Company Number: US-PFIZER INC-2016601273

PATIENT
  Age: 76 Year
  Sex: Male

DRUGS (2)
  1. VIAGRA [Suspect]
     Active Substance: SILDENAFIL CITRATE
     Dosage: UNK
  2. LYRICA [Suspect]
     Active Substance: PREGABALIN
     Indication: NEUROPATHY PERIPHERAL
     Dosage: UNK

REACTIONS (5)
  - Dementia Alzheimer^s type [Unknown]
  - Fibromyalgia [Unknown]
  - Intentional product use issue [Unknown]
  - Blood glucose increased [Unknown]
  - Drug ineffective [Unknown]
